FAERS Safety Report 7067634-X (Version None)
Quarter: 2010Q4

REPORT INFORMATION
  Report Type: 
  Country: None (occurrence: None)
  Receive Date: 20101019
  Receipt Date: 20101004
  Transmission Date: 20110411
  Serious: Yes (Death)
  Sender: FDA-Public Use
  Company Number: 017955

PATIENT
  Sex: Female
  Weight: 81.6475 kg

DRUGS (14)
  1. CIMZIA [Suspect]
     Indication: CROHN'S DISEASE
     Dosage: (400 MG 1X/MONTH SUBCUTANEOUS)
     Route: 058
     Dates: start: 20100507, end: 20100729
  2. TOPROL-XL [Concomitant]
  3. DEXLANSOPRAZOLE [Concomitant]
  4. LASIX [Concomitant]
  5. POTASSIUM CHLORIDE [Concomitant]
  6. LOTRONEX /01482801/ [Concomitant]
  7. VITAMIN A [Concomitant]
  8. DEPAKOTE [Concomitant]
  9. LEVOTHYROXINE SODIUM [Concomitant]
  10. PROZAC /00724401/ [Concomitant]
  11. ATIVAN [Concomitant]
  12. LYRICA [Concomitant]
  13. ROBAXIN [Concomitant]
  14. COUMADIN [Concomitant]

REACTIONS (1)
  - DEATH [None]
